FAERS Safety Report 9417601 (Version 2)
Quarter: 2013Q4

REPORT INFORMATION
  Report Type: Spontaneous
  Country: US (occurrence: US)
  Receive Date: 20130724
  Receipt Date: 20131022
  Transmission Date: 20140711
  Serious: No
  Sender: FDA-Public Use
  Company Number: US-BRISTOL-MYERS SQUIBB COMPANY-18989152

PATIENT
  Age: 87 Year
  Sex: Male
  Weight: 80.27 kg

DRUGS (3)
  1. ELIQUIS [Suspect]
     Indication: ATRIAL FIBRILLATION
  2. CIPRO [Concomitant]
  3. PRILOSEC [Concomitant]

REACTIONS (8)
  - Blood urine present [Unknown]
  - Infection [Unknown]
  - Weight decreased [Recovered/Resolved]
  - Heart rate increased [Unknown]
  - Cough [Unknown]
  - Fall [Unknown]
  - Blood pressure increased [Unknown]
  - Feeling abnormal [Unknown]
